FAERS Safety Report 9893783 (Version 5)
Quarter: 2014Q2

REPORT INFORMATION
  Report Type: Spontaneous
  Country: US (occurrence: US)
  Receive Date: 20140213
  Receipt Date: 20140528
  Transmission Date: 20141212
  Serious: Yes (Hospitalization, Other)
  Sender: FDA-Public Use
  Company Number: US-ACTELION-A-US2014-94583

PATIENT
  Age: 75 Year
  Sex: Male

DRUGS (3)
  1. OPSUMIT [Suspect]
     Indication: PULMONARY ARTERIAL HYPERTENSION
     Dosage: 10 MG, QD
     Route: 048
     Dates: start: 20140106
  2. RIOCIGUAT [Concomitant]
     Dosage: 1 MG, TID
     Route: 048
     Dates: start: 20140120
  3. WARFARIN [Concomitant]
     Dosage: 5 MG, QD
     Dates: start: 20131003

REACTIONS (12)
  - Malignant melanoma [Unknown]
  - Skin operation [Unknown]
  - Upper gastrointestinal haemorrhage [Unknown]
  - Productive cough [Unknown]
  - Blister [Unknown]
  - Dyspnoea [Unknown]
  - Dyspnoea exertional [Unknown]
  - Haemorrhage [Unknown]
  - Oedema [Unknown]
  - Oedema peripheral [Unknown]
  - Anaemia [Unknown]
  - Transfusion [Recovering/Resolving]
